FAERS Safety Report 16868126 (Version 5)
Quarter: 2024Q4

REPORT INFORMATION
  Report Type: Spontaneous
  Country: US (occurrence: US)
  Receive Date: 20190930
  Receipt Date: 20241121
  Transmission Date: 20250114
  Serious: No
  Sender: PFIZER
  Company Number: US-PFIZER INC-2019416612

PATIENT
  Age: 85 Year
  Sex: Female

DRUGS (1)
  1. XELJANZ XR [Suspect]
     Active Substance: TOFACITINIB CITRATE
     Dosage: 11 MG, 1X/DAY X 30 DAYS
     Route: 048

REACTIONS (1)
  - Mobility decreased [Unknown]
